FAERS Safety Report 25574201 (Version 1)
Quarter: 2025Q3

REPORT INFORMATION
  Report Type: Spontaneous
  Country: US (occurrence: US)
  Receive Date: 20250717
  Receipt Date: 20250717
  Transmission Date: 20251020
  Serious: No
  Sender: MERCK SHARP & DOHME LLC
  Company Number: US-009507513-2302101

PATIENT
  Sex: Female

DRUGS (9)
  1. WELIREG [Suspect]
     Active Substance: BELZUTIFAN
     Route: 048
     Dates: start: 20240920
  2. WELIREG [Suspect]
     Active Substance: BELZUTIFAN
     Route: 048
     Dates: start: 20241114
  3. WELIREG [Suspect]
     Active Substance: BELZUTIFAN
     Route: 048
     Dates: start: 20241209
  4. WELIREG [Suspect]
     Active Substance: BELZUTIFAN
     Route: 048
     Dates: start: 20250114
  5. WELIREG [Suspect]
     Active Substance: BELZUTIFAN
     Route: 048
     Dates: start: 20250210
  6. WELIREG [Suspect]
     Active Substance: BELZUTIFAN
     Route: 048
     Dates: start: 20250410
  7. WELIREG [Suspect]
     Active Substance: BELZUTIFAN
     Route: 048
     Dates: start: 20250311
  8. WELIREG [Suspect]
     Active Substance: BELZUTIFAN
     Route: 048
     Dates: start: 20250506
  9. WELIREG [Suspect]
     Active Substance: BELZUTIFAN
     Route: 048
     Dates: start: 20250602

REACTIONS (2)
  - Therapy non-responder [Unknown]
  - Incorrect dose administered [Unknown]
